FAERS Safety Report 5099542-8 (Version None)
Quarter: 2006Q3

REPORT INFORMATION
  Report Type: 
  Country: None (occurrence: None)
  Receive Date: 20060908
  Receipt Date: 20060615
  Transmission Date: 20061208
  Serious: Yes (Hospitalization)
  Sender: FDA-Public Use
  Company Number: HQWYE233815JUN06

PATIENT
  Sex: Male
  Weight: 56 kg

DRUGS (10)
  1. ENBREL [Suspect]
     Indication: RHEUMATOID ARTHRITIS
     Route: 058
     Dates: start: 20051129, end: 20060530
  2. BACTRIM [Concomitant]
     Indication: ANTIBIOTIC PROPHYLAXIS
     Route: 048
     Dates: start: 20050627
  3. TACROLIMUS [Concomitant]
     Indication: RHEUMATOID ARTHRITIS
     Route: 048
     Dates: start: 20060404
  4. WARFARIN SODIUM [Concomitant]
     Indication: THROMBOSIS PROPHYLAXIS
     Route: 048
     Dates: start: 20050803
  5. PREDONINE [Concomitant]
     Indication: RHEUMATOID ARTHRITIS
     Route: 048
     Dates: start: 20050826, end: 20060110
  6. PREDONINE [Concomitant]
     Route: 048
     Dates: start: 20060111, end: 20060206
  7. PREDONINE [Concomitant]
     Route: 048
     Dates: start: 20060207, end: 20060403
  8. PREDONINE [Concomitant]
     Route: 048
     Dates: start: 20060404
  9. NEORAL [Concomitant]
     Indication: RHEUMATOID ARTHRITIS
     Route: 048
     Dates: start: 20050717, end: 20050728
  10. NEORAL [Concomitant]
     Route: 048
     Dates: start: 20050729, end: 20060403

REACTIONS (4)
  - C-REACTIVE PROTEIN INCREASED [None]
  - COUGH [None]
  - PYREXIA [None]
  - WHITE BLOOD CELL COUNT INCREASED [None]
